FAERS Safety Report 25774859 (Version 5)
Quarter: 2025Q4

REPORT INFORMATION
  Report Type: Spontaneous
  Country: US (occurrence: US)
  Receive Date: 20250908
  Receipt Date: 20251210
  Transmission Date: 20260118
  Serious: Yes (Hospitalization, Other)
  Sender: ABBVIE
  Company Number: US-ABBVIE-6448991

PATIENT
  Age: 75 Year
  Sex: Female

DRUGS (8)
  1. SYNTHROID [Suspect]
     Active Substance: LEVOTHYROXINE SODIUM
     Indication: Autoimmune thyroiditis
     Dosage: FORM STRENGTH: 112.5 MICROGRAM, 75MCG PLUS HALF OF THE 75MCG
     Route: 048
  2. SYNTHROID [Suspect]
     Active Substance: LEVOTHYROXINE SODIUM
     Indication: Autoimmune thyroiditis
     Dosage: FORM STRENGTH: 75 MICROGRAM,?MONDAY TO FRIDAY
     Route: 048
     Dates: start: 1980
  3. SYNTHROID [Suspect]
     Active Substance: LEVOTHYROXINE SODIUM
     Indication: Autoimmune thyroiditis
     Dosage: FORM STRENGTH: 100 MICROGRAM
     Route: 048
     Dates: start: 202312
  4. SYNTHROID [Suspect]
     Active Substance: LEVOTHYROXINE SODIUM
     Indication: Autoimmune thyroiditis
     Route: 048
     Dates: start: 202511
  5. SYNTHROID [Suspect]
     Active Substance: LEVOTHYROXINE SODIUM
     Indication: Autoimmune thyroiditis
     Dosage: FORM STRENGTH: 88 MICROGRAM
     Route: 048
  6. SYNTHROID [Suspect]
     Active Substance: LEVOTHYROXINE SODIUM
     Indication: Autoimmune thyroiditis
     Dosage: FORM STRENGTH: 75 MICROGRAM, ?2 TABLET OF 75MCG PER DAY
     Route: 048
  7. METFORMIN [Concomitant]
     Active Substance: METFORMIN HYDROCHLORIDE
     Indication: Blood glucose increased
     Route: 065
  8. METFORMIN [Concomitant]
     Active Substance: METFORMIN HYDROCHLORIDE
     Indication: Blood glucose increased
     Dosage: FORM STRENGTH: 650 MG
     Route: 065

REACTIONS (15)
  - Rectal haemorrhage [Recovered/Resolved]
  - Drug level abnormal [Unknown]
  - Urticaria [Recovered/Resolved]
  - Dyspepsia [Unknown]
  - Blood cholesterol increased [Unknown]
  - Abdominal distension [Unknown]
  - Hernia [Not Recovered/Not Resolved]
  - Blood glucose increased [Not Recovered/Not Resolved]
  - Enzyme level increased [Unknown]
  - Arthralgia [Unknown]
  - Allergic reaction to excipient [Unknown]
  - Gastrointestinal disorder [Unknown]
  - Thyroid hormones increased [Not Recovered/Not Resolved]
  - Abdominal pain upper [Unknown]
  - Anorectal discomfort [Unknown]

NARRATIVE: CASE EVENT DATE: 20231107
